FAERS Safety Report 7198002-8 (Version None)
Quarter: 2010Q4

REPORT INFORMATION
  Report Type: 
  Country: None (occurrence: None)
  Receive Date: 20101227
  Receipt Date: 20101220
  Transmission Date: 20110411
  Serious: Yes (Other)
  Sender: FDA-Public Use
  Company Number: GB-ROCHE-749295

PATIENT

DRUGS (1)
  1. TAMIFLU [Suspect]

REACTIONS (2)
  - LABOUR INDUCTION [None]
  - NORMAL NEWBORN [None]
